FAERS Safety Report 20615218 (Version 1)
Quarter: 2022Q1

REPORT INFORMATION
  Report Type: Spontaneous
  Country: IT (occurrence: IT)
  Receive Date: 20220321
  Receipt Date: 20220321
  Transmission Date: 20220423
  Serious: Yes (Other)
  Sender: FDA-Public Use
  Company Number: IT-LUPIN PHARMACEUTICALS INC.-2022-03645

PATIENT
  Age: 10 Year
  Sex: Female

DRUGS (4)
  1. METHYLPREDNISOLONE [Suspect]
     Active Substance: METHYLPREDNISOLONE
     Indication: Mesangioproliferative glomerulonephritis
     Dosage: 15 MILLIGRAM/KILOGRAM, QD ( FOR 3 CONSECUTIVE DAY)
     Route: 042
  2. METHYLPREDNISOLONE [Suspect]
     Active Substance: METHYLPREDNISOLONE
     Dosage: UNK UNK, QD (3-DAILY PULSE)
     Route: 065
  3. PREDNISONE [Suspect]
     Active Substance: PREDNISONE
     Indication: Mesangioproliferative glomerulonephritis
     Dosage: 1 MILLIGRAM/KILOGRAM, QOD (ON ALTERNATE DAYS)
     Route: 048
  4. CYCLOPHOSPHAMIDE [Suspect]
     Active Substance: CYCLOPHOSPHAMIDE
     Indication: Mesangioproliferative glomerulonephritis
     Dosage: 2 MILLIGRAM/KILOGRAM, QD (FOR 10 WEEKS)
     Route: 048

REACTIONS (2)
  - Drug ineffective for unapproved indication [Unknown]
  - Off label use [Unknown]
